FAERS Safety Report 14537404 (Version 6)
Quarter: 2018Q2

REPORT INFORMATION
  Report Type: Report from Study
  Country: US (occurrence: US)
  Receive Date: 20180215
  Receipt Date: 20180621
  Transmission Date: 20180711
  Serious: Yes (Death, Disabling, Other)
  Sender: FDA-Public Use
  Company Number: US-ACTELION-A-NJ2018-165973

PATIENT
  Age: 71 Year
  Sex: Female

DRUGS (1)
  1. OPSUMIT [Suspect]
     Active Substance: MACITENTAN
     Indication: PULMONARY HYPERTENSION
     Dosage: 10 MG, QD
     Route: 048
     Dates: start: 20171113

REACTIONS (11)
  - Deafness [Unknown]
  - Oedema [Unknown]
  - Death [Fatal]
  - Malignant melanoma [Unknown]
  - Head injury [Unknown]
  - Fall [Unknown]
  - Mole excision [Unknown]
  - Infection [Unknown]
  - Asthenia [Unknown]
  - Malaise [Unknown]
  - Insomnia [Unknown]

NARRATIVE: CASE EVENT DATE: 20180521
